FAERS Safety Report 8588961-0 (Version None)
Quarter: 2012Q3

REPORT INFORMATION
  Report Type: 
  Country: None (occurrence: None)
  Receive Date: 20120813
  Receipt Date: 20120801
  Transmission Date: 20120928
  Serious: Yes (Hospitalization, Disabling)
  Sender: FDA-Public Use
  Company Number: US-BAYER-2012-079291

PATIENT
  Age: 22 Year
  Sex: Female
  Weight: 54.422 kg

DRUGS (10)
  1. ATROVENT [Concomitant]
  2. REQUIP [Concomitant]
     Dosage: UNK
  3. YAZ [Suspect]
     Dosage: UNK
  4. EPIPEN [Concomitant]
     Dosage: UNK UNK, PRN
  5. VANCOMYCIN [Concomitant]
     Indication: BACTERAEMIA
  6. ALBUTEROL [Concomitant]
  7. AZITHROMYCIN [Concomitant]
     Dosage: 250 MG, TAB UNK
     Dates: start: 20100930
  8. ZOSYN [Concomitant]
  9. DROSPIRENONE AND ETHINYL ESTRADIOL [Suspect]
     Dosage: UNK
  10. CHLORPHEN.MA.W/PHENYLEPH.HCL/DEX.METHORP.HBR [Concomitant]
     Dosage: UNK
     Dates: start: 20100930

REACTIONS (2)
  - CEREBELLAR INFARCTION [None]
  - BRAIN COMPRESSION [None]
